FAERS Safety Report 7713522-2 (Version None)
Quarter: 2011Q3

REPORT INFORMATION
  Report Type: 
  Country: None (occurrence: None)
  Receive Date: 20110826
  Receipt Date: 20110823
  Transmission Date: 20111222
  Serious: Yes (Other)
  Sender: FDA-Public Use
  Company Number: US-PFIZER INC-2011151732

PATIENT
  Sex: Female
  Weight: 59.9 kg

DRUGS (10)
  1. VERAPAMIL [Concomitant]
     Dosage: 120 MG, DAILY
     Route: 048
  2. METOCLOPRAMIDE [Concomitant]
     Dosage: 10 MG, DAILY
     Route: 048
  3. CHANTIX [Suspect]
     Indication: SMOKING CESSATION THERAPY
     Dosage: UNK
     Route: 048
     Dates: start: 20110628, end: 20110703
  4. ATENOLOL [Concomitant]
     Dosage: 50 MG, UNK
     Route: 048
  5. ASPIRIN [Concomitant]
     Dosage: 81 MG, UNK
     Route: 048
  6. CLONAZEPAM [Concomitant]
     Dosage: 0.5 MG, DAILY
     Route: 048
  7. RAMIPRIL [Concomitant]
     Dosage: 20 MG, DAILY
     Route: 048
  8. PREMARIN [Concomitant]
     Dosage: 0.625 MG, UNK
     Route: 048
  9. LIPITOR [Concomitant]
     Dosage: 20 MG, DAILY
     Route: 048
  10. VIGABATRIN [Concomitant]
     Dosage: 20 MG, UNK
     Route: 048

REACTIONS (5)
  - AFFECTIVE DISORDER [None]
  - DEPRESSION [None]
  - AGGRESSION [None]
  - MOOD SWINGS [None]
  - VIOLENCE-RELATED SYMPTOM [None]
